FAERS Safety Report 4303424-6 (Version None)
Quarter: 2004Q1

REPORT INFORMATION
  Report Type: 
  Country: None (occurrence: None)
  Receive Date: 20040223
  Receipt Date: 20040209
  Transmission Date: 20041129
  Serious: Yes (Hospitalization)
  Sender: FDA-Public Use
  Company Number: 23064M02FRA

PATIENT
  Age: 45 Year
  Sex: Female

DRUGS (10)
  1. REBIF [Suspect]
     Indication: MULTIPLE SCLEROSIS
     Dosage: 3 IN 1 WEEKS, SUBCUTANEOUS
     Route: 058
     Dates: start: 20010423, end: 20020913
  2. ROFECOXIB [Suspect]
     Dosage: 25 MG, 1 IN 1 DAYS, PER ORAL
     Route: 048
     Dates: start: 20020401
  3. ACENOCOUMAROL [Suspect]
     Dosage: PER ORAL
     Route: 048
     Dates: start: 19951001
  4. OMEPRAZOLE [Suspect]
     Dosage: 2O MG, 1 IN1 DAYS, PER ORAL
     Route: 048
     Dates: start: 19961001
  5. HYDROCORTISONE HYDROGEN SUCCINATE [Suspect]
     Dosage: 25 MG, 1 IN 1 DAYS, PER ORAL
     Route: 048
     Dates: start: 20010801
  6. FENOFIBRATE [Suspect]
     Dosage: 1 IN 1 DAYS, PER ORAL
     Route: 048
     Dates: start: 19950101
  7. ETIDRONATE DISODIUM [Concomitant]
  8. CALCIUM CARBONATE [Concomitant]
  9. PRAZEPAM [Concomitant]
  10. TRAMADOL HYDROCHLORIDE [Concomitant]

REACTIONS (2)
  - GOITRE [None]
  - HYPERTHYROIDISM [None]
